FAERS Safety Report 9046900 (Version 1)
Quarter: 2013Q1

REPORT INFORMATION
  Report Type: Spontaneous
  Country: GB (occurrence: GB)
  Receive Date: 20130204
  Receipt Date: 20130204
  Transmission Date: 20140127
  Serious: Yes (Hospitalization)
  Sender: FDA-Public Use
  Company Number: GB-JNJFOC-20130114046

PATIENT
  Age: 36 Year
  Sex: Female

DRUGS (8)
  1. XARELTO [Suspect]
     Indication: EMBOLISM VENOUS
     Route: 048
     Dates: end: 20130110
  2. XARELTO [Suspect]
     Indication: DEEP VEIN THROMBOSIS
     Route: 048
     Dates: end: 20130110
  3. TOPIRAMATE [Concomitant]
     Route: 048
  4. MINOCYCLINE [Concomitant]
     Route: 065
  5. PRAMIPEXOLE [Concomitant]
     Route: 065
  6. FLUOXETINE [Concomitant]
     Route: 065
  7. CLONAZEPAM [Concomitant]
     Route: 065
  8. LEVOTHYROXINE [Concomitant]
     Route: 065

REACTIONS (1)
  - Headache [Recovered/Resolved]
